FAERS Safety Report 6940127-3 (Version None)
Quarter: 2010Q3

REPORT INFORMATION
  Report Type: 
  Country: None (occurrence: None)
  Receive Date: 20100825
  Receipt Date: 20100819
  Transmission Date: 20110219
  Serious: Yes (Hospitalization)
  Sender: FDA-Public Use
  Company Number: US-SANOFI-AVENTIS-2010SA049738

PATIENT
  Age: 53 Year
  Sex: Male
  Weight: 80.45 kg

DRUGS (8)
  1. ELIGARD [Suspect]
     Indication: PROSTATE CANCER
     Route: 058
     Dates: start: 20100212, end: 20100212
  2. ELIGARD [Suspect]
     Route: 058
     Dates: start: 20100817, end: 20100817
  3. CASODEX [Concomitant]
  4. VITAMIN D [Concomitant]
  5. TERAZOSIN HCL [Concomitant]
  6. CLONAZEPAM [Concomitant]
  7. SERTRALINE HYDROCHLORIDE [Concomitant]
  8. TEMAZEPAM [Concomitant]

REACTIONS (3)
  - DEPRESSION [None]
  - MANIA [None]
  - PARANOIA [None]
